FAERS Safety Report 7381626-2 (Version None)
Quarter: 2011Q1

REPORT INFORMATION
  Report Type: 
  Country: None (occurrence: None)
  Receive Date: 20110329
  Receipt Date: 20101006
  Transmission Date: 20110831
  Serious: Yes (Other)
  Sender: FDA-Public Use
  Company Number: US-BAYER-200942782NA

PATIENT
  Sex: Female
  Weight: 108.84 kg

DRUGS (4)
  1. YASMIN [Suspect]
     Indication: POLYCYSTIC OVARIES
     Route: 048
     Dates: start: 20010101, end: 20061101
  2. SPIRONOLACTONE [Concomitant]
     Dosage: UNK
     Dates: start: 20040101
  3. FLUOXETINE HCL [Concomitant]
     Indication: DEPRESSION
     Dosage: 20 MG, QD
     Dates: start: 20040101
  4. FLUTAMIDE [Concomitant]
     Indication: HORMONE LEVEL ABNORMAL
     Dosage: 125 MG, UNK
     Dates: start: 20030101

REACTIONS (3)
  - CEREBROVASCULAR ACCIDENT [None]
  - THROMBOSIS [None]
  - RETINAL VEIN OCCLUSION [None]
